FAERS Safety Report 9869569 (Version 1)
Quarter: 2014Q1

REPORT INFORMATION
  Report Type: Spontaneous
  Country: CN (occurrence: None)
  Receive Date: 20140203
  Receipt Date: 20140203
  Transmission Date: 20141002
  Serious: Yes (Other)
  Sender: FDA-Public Use
  Company Number: SYM-2014-16084

PATIENT
  Age: 62 Year
  Sex: Male

DRUGS (8)
  1. BUPROPION HYDROCHLORIDE [Suspect]
     Indication: BIPOLAR II DISORDER
  2. BUPROPION HYDROCHLORIDE [Suspect]
     Indication: DEPRESSION
  3. BUPROPION HYDROCHLORIDE [Suspect]
     Indication: OFF LABEL USE
  4. RISPERIDONE [Suspect]
     Indication: BIPOLAR II DISORDER
  5. RISPERIDONE [Suspect]
     Indication: OFF LABEL USE
  6. QUETIAPINE (QUETIAPINE) (QUETIAPINE) [Suspect]
     Indication: HALLUCINATION, AUDITORY
  7. QUETIAPINE (QUETIAPINE) (QUETIAPINE) [Suspect]
     Indication: INSOMNIA
  8. LAMOTRIGINE [Concomitant]

REACTIONS (14)
  - Delirium [None]
  - Treatment noncompliance [None]
  - Hallucination, auditory [None]
  - Insomnia [None]
  - Dry mouth [None]
  - Dry skin [None]
  - Abdominal discomfort [None]
  - Constipation [None]
  - Confusional state [None]
  - Disorientation [None]
  - Agitation [None]
  - Depression [None]
  - Drug interaction [None]
  - Off label use [None]
